FAERS Safety Report 9352439 (Version 1)
Quarter: 2013Q2

REPORT INFORMATION
  Report Type: Spontaneous
  Country: PL (occurrence: PL)
  Receive Date: 20130617
  Receipt Date: 20130617
  Transmission Date: 20140414
  Serious: Yes (Other)
  Sender: FDA-Public Use
  Company Number: PL-BAXTER-2013BAX022499

PATIENT
  Age: 53 Year
  Sex: Female

DRUGS (4)
  1. ENDOXAN [Suspect]
     Indication: LEIOMYOSARCOMA
     Route: 065
  2. ADRIAMYCIN [Suspect]
     Indication: LEIOMYOSARCOMA
     Route: 065
  3. DACTINOMYCIN [Suspect]
     Indication: LEIOMYOSARCOMA
     Route: 065
  4. IMIDAZOLE [Suspect]
     Indication: LEIOMYOSARCOMA
     Route: 065

REACTIONS (1)
  - Disease progression [Unknown]
